FAERS Safety Report 9419424 (Version 1)
Quarter: 2013Q3

REPORT INFORMATION
  Report Type: Spontaneous
  Country: JP (occurrence: JP)
  Receive Date: 20130725
  Receipt Date: 20130725
  Transmission Date: 20140515
  Serious: Yes (Other)
  Sender: FDA-Public Use
  Company Number: JP-PFIZER INC-2013215039

PATIENT
  Age: 21 Year
  Sex: Female
  Weight: 48.5 kg

DRUGS (4)
  1. SOLANAX [Suspect]
     Dosage: 0.4 MG, 3X/DAY, AFTER MEALS
     Route: 048
     Dates: start: 20130702
  2. HIRNAMIN [Suspect]
     Dosage: 50 MG, 3X/DAY, AFTER MEALS
     Route: 048
     Dates: start: 20130702
  3. EURODIN [Suspect]
     Dosage: 2 MG, 1X/DAY, AT BEDTIME
     Route: 048
     Dates: start: 20130702
  4. VEGETAMIN A [Suspect]
     Dosage: UNK
     Route: 048

REACTIONS (1)
  - Road traffic accident [Unknown]
